FAERS Safety Report 15447966 (Version 4)
Quarter: 2021Q4

REPORT INFORMATION
  Report Type: Spontaneous
  Country: US (occurrence: US)
  Receive Date: 20180928
  Receipt Date: 20211118
  Transmission Date: 20220303
  Serious: No
  Sender: FDA-Public Use
  Company Number: US-BIOMARINAP-US-2018-119923

PATIENT
  Age: 10 Year
  Sex: Male

DRUGS (3)
  1. ALDURAZYME [Suspect]
     Active Substance: LARONIDASE
     Indication: Mucopolysaccharidosis I
     Dosage: 20.3 MILLIGRAM, QW
     Route: 042
     Dates: start: 20120821
  2. ALDURAZYME [Suspect]
     Active Substance: LARONIDASE
     Dosage: 14.50 UNITS
     Route: 041
     Dates: start: 20150307, end: 20190623
  3. ALDURAZYME [Suspect]
     Active Substance: LARONIDASE
     Dosage: 20.30 MILLIGRAM, QW
     Route: 042
     Dates: start: 20190623

REACTIONS (2)
  - Pyrexia [Unknown]
  - Corneal transplant [Recovering/Resolving]

NARRATIVE: CASE EVENT DATE: 20181206
